FAERS Safety Report 6978256-0 (Version None)
Quarter: 2010Q3

REPORT INFORMATION
  Report Type: 
  Country: None (occurrence: None)
  Receive Date: 20100913
  Receipt Date: 20100831
  Transmission Date: 20110219
  Serious: Yes (Hospitalization)
  Sender: FDA-Public Use
  Company Number: GB-JNJFOC-20100504284

PATIENT
  Sex: Female

DRUGS (2)
  1. CG5503 BASE [Suspect]
     Route: 048
  2. CG5503 BASE [Suspect]
     Indication: ARTHRALGIA
     Route: 048

REACTIONS (2)
  - BACK PAIN [None]
  - URINARY TRACT INFECTION [None]
